FAERS Safety Report 14033492 (Version 1)
Quarter: 2017Q4

REPORT INFORMATION
  Report Type: Spontaneous
  Country: BR (occurrence: BR)
  Receive Date: 20171003
  Receipt Date: 20171003
  Transmission Date: 20180321
  Serious: Yes (Other)
  Sender: FDA-Public Use
  Company Number: PHHY2017BR096300

PATIENT
  Sex: Female

DRUGS (1)
  1. DESOGESTREL [Suspect]
     Active Substance: DESOGESTREL
     Indication: MENSTRUAL CYCLE MANAGEMENT
     Dosage: UNK, QD
     Route: 048
     Dates: start: 20170420

REACTIONS (6)
  - Peripheral venous disease [Unknown]
  - Obstruction [Unknown]
  - Menstruation irregular [Unknown]
  - Pain [Unknown]
  - Constipation [Unknown]
  - Haemorrhage [Unknown]
